FAERS Safety Report 15664731 (Version 2)
Quarter: 2019Q1

REPORT INFORMATION
  Report Type: Spontaneous
  Country: US (occurrence: US)
  Receive Date: 20181128
  Receipt Date: 20190227
  Transmission Date: 20190417
  Serious: No
  Sender: FDA-Public Use
  Company Number: US-GLENMARK PHARMACEUTICALS-2018GMK038273

PATIENT

DRUGS (1)
  1. COLESEVELAM HYDROCHLORIDE TABLETS [625MG] [Suspect]
     Active Substance: COLESEVELAM HYDROCHLORIDE
     Indication: HYPERCHOLESTEROLAEMIA
     Dosage: 6 DF, QD
     Route: 048

REACTIONS (2)
  - Drug effect incomplete [Unknown]
  - Product substitution issue [Unknown]
